FAERS Safety Report 6342536-2 (Version None)
Quarter: 2009Q3

REPORT INFORMATION
  Report Type: 
  Country: None (occurrence: None)
  Receive Date: 20090908
  Receipt Date: 20090831
  Transmission Date: 20100115
  Serious: Yes (Other)
  Sender: FDA-Public Use
  Company Number: US-TEVA-207802USA

PATIENT
  Sex: Female
  Weight: 28.148 kg

DRUGS (2)
  1. SALBUTAMOL SULFATE INHALATION, 0.09 MG [Suspect]
     Dosage: 2 PUFFS EVERY 4 HOURS
     Route: 055
     Dates: start: 20090808
  2. ZOLPIDEM TARTRATE [Concomitant]

REACTIONS (1)
  - BREAST CANCER [None]
